FAERS Safety Report 9012717 (Version 1)
Quarter: 2013Q1

REPORT INFORMATION
  Report Type: Spontaneous
  Country: GB (occurrence: GB)
  Receive Date: 20130114
  Receipt Date: 20130114
  Transmission Date: 20140127
  Serious: Yes (Other)
  Sender: FDA-Public Use
  Company Number: GB-ROCHE-1179368

PATIENT
  Sex: Female

DRUGS (4)
  1. XOLAIR [Suspect]
     Indication: ASTHMA
     Route: 058
     Dates: start: 20120319, end: 20120917
  2. PREDNISOLONE [Concomitant]
  3. CARBAZOCHROME [Concomitant]
  4. PIRITON [Concomitant]

REACTIONS (2)
  - Pharyngeal oedema [Unknown]
  - Injection site swelling [Unknown]
